FAERS Safety Report 5477516-2 (Version None)
Quarter: 2007Q4

REPORT INFORMATION
  Report Type: 
  Country: None (occurrence: None)
  Receive Date: 20071001
  Receipt Date: 20070913
  Transmission Date: 20080405
  Serious: Yes (Life-Threatening)
  Sender: FDA-Public Use
  Company Number: GXKR2007SG07966

PATIENT
  Age: 43 Year
  Sex: Female

DRUGS (5)
  1. PROPRANOLOL [Suspect]
     Indication: THYROTOXIC CRISIS
     Dosage: 20 MG ORAL
     Route: 048
  2. HYDROCORTISONE [Concomitant]
  3. ADENOSINE [Concomitant]
  4. PROPYLTHIOURACIL [Concomitant]
  5. CEFTRIAXONE [Concomitant]

REACTIONS (3)
  - CARDIAC ARREST [None]
  - CARDIO-RESPIRATORY ARREST [None]
  - SINUS BRADYCARDIA [None]
